FAERS Safety Report 23888080 (Version 1)
Quarter: 2024Q2

REPORT INFORMATION
  Report Type: Spontaneous
  Country: US (occurrence: US)
  Receive Date: 20240523
  Receipt Date: 20240523
  Transmission Date: 20240716
  Serious: No
  Sender: FDA-Public Use
  Company Number: US-ELI_LILLY_AND_COMPANY-US202405012783

PATIENT
  Age: 39 Year
  Sex: Female

DRUGS (1)
  1. OLUMIANT [Suspect]
     Active Substance: BARICITINIB
     Indication: Alopecia areata
     Dosage: 2 MG, DAILY
     Route: 048
     Dates: start: 202305

REACTIONS (7)
  - Product dose omission issue [Recovered/Resolved]
  - Brain fog [Unknown]
  - Weight increased [Unknown]
  - Nausea [Unknown]
  - Sinusitis [Not Recovered/Not Resolved]
  - Alopecia [Unknown]
  - Drug ineffective [Unknown]

NARRATIVE: CASE EVENT DATE: 20240101
